FAERS Safety Report 7384963-0 (Version None)
Quarter: 2011Q1

REPORT INFORMATION
  Report Type: 
  Country: None (occurrence: None)
  Receive Date: 20110330
  Receipt Date: 20110317
  Transmission Date: 20110831
  Serious: Yes (Other)
  Sender: FDA-Public Use
  Company Number: US-CELGENEUS-163-21880-11011332

PATIENT
  Sex: Female

DRUGS (3)
  1. REVLIMID [Suspect]
     Dosage: 15 MILLIGRAM
     Route: 048
     Dates: start: 20100701
  2. DURAGESIC-50 [Concomitant]
     Indication: ARTHRITIS
     Dosage: 25 MICROGRAM
     Route: 065
     Dates: start: 20091112
  3. REVLIMID [Suspect]
     Indication: MULTIPLE MYELOMA
     Dosage: 25 MILLIGRAM
     Route: 048
     Dates: start: 20100705, end: 20101105

REACTIONS (1)
  - DEMENTIA ALZHEIMER'S TYPE [None]
